FAERS Safety Report 8140555-7 (Version None)
Quarter: 2012Q1

REPORT INFORMATION
  Report Type: 
  Country: None (occurrence: None)
  Receive Date: 20120216
  Receipt Date: 20120213
  Transmission Date: 20120608
  Serious: Yes (Other)
  Sender: FDA-Public Use
  Company Number: US-PFIZER INC-2011276270

PATIENT
  Sex: Female
  Weight: 102 kg

DRUGS (3)
  1. LYRICA [Suspect]
     Indication: DIABETIC NEUROPATHY
  2. LYRICA [Suspect]
     Indication: NEURALGIA
  3. LYRICA [Suspect]
     Indication: OEDEMA PERIPHERAL
     Dosage: 75 MG, 2X/DAY
     Route: 048
     Dates: start: 20110901, end: 20111001

REACTIONS (7)
  - HYPERTENSION [None]
  - NERVOUSNESS [None]
  - FEELING ABNORMAL [None]
  - NASOPHARYNGITIS [None]
  - HEADACHE [None]
  - HYPERHIDROSIS [None]
  - DIABETES MELLITUS [None]
